FAERS Safety Report 9280597 (Version 1)
Quarter: 2013Q2

REPORT INFORMATION
  Report Type: Spontaneous
  Country: FR (occurrence: FR)
  Receive Date: 20130509
  Receipt Date: 20130509
  Transmission Date: 20140414
  Serious: Yes (Other)
  Sender: FDA-Public Use
  Company Number: FR-PFIZER INC-2013141322

PATIENT
  Age: 70 Year
  Sex: Male
  Weight: 65.01 kg

DRUGS (2)
  1. MOTRIN [Suspect]
     Indication: PAIN
     Dosage: UNK
  2. TRAMADOL [Concomitant]
     Dosage: 50 MG, UNK

REACTIONS (2)
  - Renal failure acute [Unknown]
  - Azotaemia [Unknown]
